FAERS Safety Report 4860509-3 (Version None)
Quarter: 2005Q4

REPORT INFORMATION
  Report Type: 
  Country: None (occurrence: None)
  Receive Date: 20051219
  Receipt Date: 20051209
  Transmission Date: 20060501
  Serious: Yes (Hospitalization)
  Sender: FDA-Public Use
  Company Number: US-ABBOTT-05P-163-0319207-00

PATIENT
  Sex: Male
  Weight: 120 kg

DRUGS (8)
  1. HUMIRA [Suspect]
     Indication: RHEUMATOID ARTHRITIS
     Route: 058
     Dates: start: 20050101, end: 20051121
  2. HUMIRA [Suspect]
     Route: 058
     Dates: start: 20051207
  3. HYDROCORTISONE [Concomitant]
     Indication: RHEUMATOID ARTHRITIS
     Route: 048
  4. LEVOTHYROXINE SODIUM [Concomitant]
     Indication: ADRENOCORTICAL INSUFFICIENCY CHRONIC
     Route: 048
  5. CRESTOR [Concomitant]
     Indication: BLOOD CHOLESTEROL INCREASED
     Route: 048
  6. FENOFIBRATE [Concomitant]
     Indication: BLOOD CHOLESTEROL INCREASED
     Route: 048
  7. FENTANYL [Concomitant]
     Indication: PAIN
     Route: 062
  8. METOCLOPRAMIDE [Concomitant]
     Indication: NAUSEA
     Route: 048

REACTIONS (3)
  - PULMONARY EMBOLISM [None]
  - PULMONARY THROMBOSIS [None]
  - THROMBOSIS [None]
